FAERS Safety Report 6271241-6 (Version None)
Quarter: 2009Q3

REPORT INFORMATION
  Report Type: 
  Country: None (occurrence: None)
  Receive Date: 20090717
  Receipt Date: 20090714
  Transmission Date: 20100115
  Serious: Yes (Death, Hospitalization)
  Sender: FDA-Public Use
  Company Number: US-JNJFOC-20090704769

PATIENT
  Sex: Male
  Weight: 103.42 kg

DRUGS (4)
  1. RISPERDAL [Suspect]
     Indication: AGITATION
     Route: 065
  2. UNKNOWN MEDICATION [Concomitant]
     Indication: HYPERTENSION
     Route: 065
  3. UNKNOWN MEDICATION [Concomitant]
     Indication: COAGULOPATHY
     Route: 065
  4. UNKNOWN MEDICATION [Concomitant]
     Indication: BLOOD CHOLESTEROL INCREASED
     Route: 065

REACTIONS (8)
  - ADVERSE EVENT [None]
  - DEATH [None]
  - DIABETES MELLITUS [None]
  - INSOMNIA [None]
  - MUSCLE TWITCHING [None]
  - PRURITUS [None]
  - RASH GENERALISED [None]
  - SEDATION [None]
